FAERS Safety Report 7736829-1 (Version None)
Quarter: 2011Q3

REPORT INFORMATION
  Report Type: 
  Country: None (occurrence: None)
  Receive Date: 20110908
  Receipt Date: 20110908
  Transmission Date: 20111222
  Serious: No
  Sender: FDA-Public Use
  Company Number: None

PATIENT
  Sex: Female
  Weight: 67.131 kg

DRUGS (1)
  1. LIPITOR [Suspect]
     Indication: BLOOD CHOLESTEROL INCREASED
     Dosage: 10 MG
     Route: 048
     Dates: start: 20110601, end: 20110731

REACTIONS (6)
  - DIPLOPIA [None]
  - ANTIACETYLCHOLINE RECEPTOR ANTIBODY POSITIVE [None]
  - VISION BLURRED [None]
  - MYASTHENIA GRAVIS [None]
  - MUSCULAR WEAKNESS [None]
  - EYELID PTOSIS [None]
